FAERS Safety Report 5656556-4 (Version None)
Quarter: 2008Q1

REPORT INFORMATION
  Report Type: 
  Country: None (occurrence: None)
  Receive Date: 20080310
  Receipt Date: 20080228
  Transmission Date: 20080703
  Serious: Yes (Other)
  Sender: FDA-Public Use
  Company Number: JP-BRISTOL-MYERS SQUIBB COMPANY-14105720

PATIENT
  Age: 82 Year
  Sex: Male

DRUGS (6)
  1. GATIFLOXACIN [Suspect]
     Indication: PNEUMONIA
     Route: 048
     Dates: start: 20080208, end: 20080209
  2. AMARYL [Concomitant]
     Indication: DIABETES MELLITUS
     Route: 048
     Dates: start: 20060801
  3. BLOSTAR M [Concomitant]
     Route: 048
  4. GASMOTIN [Concomitant]
     Route: 048
  5. PROMAC [Concomitant]
     Route: 048
  6. GLYSENNID [Concomitant]
     Route: 048

REACTIONS (1)
  - HYPOGLYCAEMIA [None]
